FAERS Safety Report 9671887 (Version 1)
Quarter: 2013Q4

REPORT INFORMATION
  Report Type: Spontaneous
  Country: CA (occurrence: CA)
  Receive Date: 20131106
  Receipt Date: 20131106
  Transmission Date: 20140711
  Serious: Yes (Other)
  Sender: FDA-Public Use
  Company Number: CA-BRISTOL-MYERS SQUIBB COMPANY-19703446

PATIENT
  Age: 79 Year
  Sex: Male

DRUGS (1)
  1. HYDREA [Suspect]

REACTIONS (1)
  - Cerebrovascular accident [Unknown]
